FAERS Safety Report 5743130-4 (Version None)
Quarter: 2008Q2

REPORT INFORMATION
  Report Type: 
  Country: None (occurrence: None)
  Receive Date: 20080519
  Receipt Date: 20080507
  Transmission Date: 20081010
  Serious: No
  Sender: FDA-Public Use
  Company Number: GB-ELI_LILLY_AND_COMPANY-GB200805002091

PATIENT
  Sex: Male

DRUGS (4)
  1. STRATTERA [Suspect]
     Indication: ATTENTION DEFICIT/HYPERACTIVITY DISORDER
     Dosage: 18 MG, UNKNOWN
     Dates: start: 20071108
  2. STRATTERA [Suspect]
     Dosage: 25 MG, UNK
     Dates: end: 20080111
  3. RITALIN [Concomitant]
     Indication: ATTENTION DEFICIT/HYPERACTIVITY DISORDER
     Dosage: UNK, UNK
     Dates: start: 20030101, end: 20080111
  4. CONCERTA [Concomitant]
     Dosage: 72 MG, UNK
     Dates: start: 20050101, end: 20080111

REACTIONS (1)
  - ELECTROCARDIOGRAM QT PROLONGED [None]
